FAERS Safety Report 17345881 (Version 3)
Quarter: 2020Q2

REPORT INFORMATION
  Report Type: Spontaneous
  Country: US (occurrence: US)
  Receive Date: 20200129
  Receipt Date: 20200410
  Transmission Date: 20200713
  Serious: No
  Sender: FDA-Public Use
  Company Number: NVSC2020US022307

PATIENT
  Age: 2 Year
  Sex: Male

DRUGS (1)
  1. ZOLGENSMA [Suspect]
     Active Substance: ONASEMNOGENE ABEPARVOVEC-XIOI
     Indication: SPINAL MUSCULAR ATROPHY
     Dosage: 1 IU, ONCE/SINGLE (RECEIVED ZOLGENSMA IN EARLY DEC 2019)
     Route: 042

REACTIONS (3)
  - White blood cell count decreased [Unknown]
  - Eyelid ptosis [Unknown]
  - Influenza [Unknown]

NARRATIVE: CASE EVENT DATE: 20200124
